FAERS Safety Report 21020585 (Version 1)
Quarter: 2022Q2

REPORT INFORMATION
  Report Type: Report from Study
  Country: JP (occurrence: JP)
  Receive Date: 20220629
  Receipt Date: 20220629
  Transmission Date: 20220720
  Serious: Yes (Death, Hospitalization, Other)
  Sender: FDA-Public Use
  Company Number: JP-SA-2021SA217297

PATIENT
  Age: 71 Year
  Sex: Male

DRUGS (6)
  1. SARILUMAB [Suspect]
     Active Substance: SARILUMAB
     Indication: Rheumatoid arthritis
     Dosage: 200 MG, QOW
     Route: 058
     Dates: start: 20200605, end: 20210606
  2. METHOTREXATE [Concomitant]
     Active Substance: METHOTREXATE
     Indication: Rheumatoid arthritis
     Dosage: 8 MG, QW
     Route: 065
     Dates: end: 20200929
  3. METHOTREXATE [Concomitant]
     Active Substance: METHOTREXATE
     Dosage: 6 MG, QW
     Route: 065
     Dates: start: 20200930
  4. LOXOPROFEN SODIUM [Concomitant]
     Active Substance: LOXOPROFEN SODIUM
     Indication: Rheumatoid arthritis
     Dosage: 60 MG, TID
     Route: 065
  5. FOLIC ACID [Concomitant]
     Active Substance: FOLIC ACID
     Indication: Prophylaxis
     Dosage: UNK
     Route: 065
  6. TEPRENONE [Concomitant]
     Active Substance: TEPRENONE
     Indication: Prophylaxis
     Dosage: UNK
     Route: 065

REACTIONS (1)
  - Pneumonia [Fatal]

NARRATIVE: CASE EVENT DATE: 20210510
